FAERS Safety Report 11673182 (Version 1)
Quarter: 2015Q4

REPORT INFORMATION
  Report Type: Spontaneous
  Country: US (occurrence: None)
  Receive Date: 20151027
  Receipt Date: 20151027
  Transmission Date: 20160304
  Serious: No
  Sender: FDA-Public Use
  Company Number: None

PATIENT
  Age: 44 Year
  Sex: Female

DRUGS (2)
  1. GLATOPA [Suspect]
     Active Substance: GLATIRAMER ACETATE
     Indication: MULTIPLE SCLEROSIS
     Route: 058
     Dates: start: 201507
  2. PSEUDOEPHEDR [Concomitant]

REACTIONS (12)
  - Abdominal distension [None]
  - Syncope [None]
  - Hyperhidrosis [None]
  - Chills [None]
  - Flushing [None]
  - Dysgeusia [None]
  - Heart rate increased [None]
  - Swelling [None]
  - Dizziness [None]
  - Nausea [None]
  - Injection site reaction [None]
  - Dyspnoea [None]
